FAERS Safety Report 7817080-3 (Version None)
Quarter: 2011Q4

REPORT INFORMATION
  Report Type: 
  Country: None (occurrence: None)
  Receive Date: 20111017
  Receipt Date: 20111011
  Transmission Date: 20120403
  Serious: Yes (Other)
  Sender: FDA-Public Use
  Company Number: PHHY2011AU82539

PATIENT
  Sex: Female
  Weight: 52 kg

DRUGS (1)
  1. ZOLEDRONOC ACID [Suspect]
     Dosage: UNK UKN, UNK
     Route: 042

REACTIONS (2)
  - PARKINSON'S DISEASE [None]
  - HYPERTENSION [None]
